FAERS Safety Report 6195598-X (Version None)
Quarter: 2009Q2

REPORT INFORMATION
  Report Type: 
  Country: None (occurrence: None)
  Receive Date: 20090519
  Receipt Date: 20090513
  Transmission Date: 20091009
  Serious: Yes (Other)
  Sender: FDA-Public Use
  Company Number: DE-PFIZER INC-2008157215

PATIENT
  Age: 24 Year

DRUGS (2)
  1. DOSTINEX [Suspect]
     Indication: HYPERPROLACTINAEMIA
     Dosage: 0.25 MG, 2X/WEEK
     Route: 048
     Dates: start: 20080101
  2. DROSPIRENONE + ETHINYL ESTRADIOL [Concomitant]
     Indication: ENDOMETRIOSIS
     Dosage: 1 TAB. PER DAY
     Dates: start: 20080501

REACTIONS (1)
  - HEMIANOPIA [None]
